FAERS Safety Report 8747083 (Version 2)
Quarter: 2012Q4

REPORT INFORMATION
  Report Type: 
  Country: AU (occurrence: AU)
  Receive Date: 20120827
  Receipt Date: 20120914
  Transmission Date: 20130627
  Serious: Yes (Death, Hospitalization, Other)
  Sender: FDA-Public Use
  Company Number: AU-B.I. PHARMACEUTICALS,INC./RIDGEFIELD-2012-AU-01512AU

PATIENT
  Age: 80 None
  Sex: Female
  Weight: 50 kg

DRUGS (16)
  1. PRADAXA [Suspect]
     Indication: CEREBROVASCULAR ACCIDENT PROPHYLAXIS
     Dosage: 220 mg
     Dates: start: 20110816
  2. PRADAXA [Suspect]
     Indication: ATRIAL FIBRILLATION
  3. ACIMAX [Concomitant]
     Dosage: 20 mg
  4. ACTONEL EC COMBI EC [Concomitant]
     Indication: OSTEOPOROSIS
     Dosage: 35 mg +1.25g
  5. ALDACTONE [Concomitant]
     Dosage: 12.5 mg
  6. LANOXIN PG [Concomitant]
     Dosage: 62.5 mcg
  7. LASIX [Concomitant]
     Dosage: 40 mg
  8. LIPITOR [Concomitant]
     Dosage: 40 mg
  9. MOVICOL [Concomitant]
     Dosage: 13.125g/350.7mg/46.6mg/178.5mg
  10. NEO-CYTAMEN [Concomitant]
     Dosage: 1mg/mL
     Route: 051
  11. PANAMAX [Concomitant]
  12. REFRESH TEARS PLUS [Concomitant]
     Dosage: 5 mg/mL
  13. SERETIDE [Concomitant]
     Indication: CHRONIC OBSTRUCTIVE PULMONARY DISEASE
     Dosage: 250 mcg-25mcg/dose
  14. SPIRIVA [Concomitant]
     Dosage: 18 mcg
  15. TOPROL-XL [Concomitant]
     Dosage: 190 mg
  16. VENTOLIN [Concomitant]
     Dosage: 100 mcg/dose

REACTIONS (7)
  - Diffuse large B-cell lymphoma [Fatal]
  - Renal failure [Unknown]
  - Convulsion [Unknown]
  - Peripheral vascular disorder [Unknown]
  - Weight decreased [Unknown]
  - Decreased appetite [Unknown]
  - Epistaxis [Unknown]
